FAERS Safety Report 9569305 (Version 1)
Quarter: 2013Q3

REPORT INFORMATION
  Report Type: Spontaneous
  Country: US (occurrence: US)
  Receive Date: 20130930
  Receipt Date: 20130930
  Transmission Date: 20140515
  Serious: No
  Sender: FDA-Public Use
  Company Number: US-AMGEN-USASP2013058027

PATIENT
  Age: 40 Year
  Sex: Male
  Weight: 63.49 kg

DRUGS (1)
  1. ENBREL [Suspect]
     Indication: ANKYLOSING SPONDYLITIS
     Dosage: 50 MG, QWK
     Route: 058
     Dates: start: 20121201, end: 20130531

REACTIONS (2)
  - Vertigo positional [Recovered/Resolved]
  - Dizziness [Recovered/Resolved]
